FAERS Safety Report 13646766 (Version 6)
Quarter: 2018Q1

REPORT INFORMATION
  Report Type: Spontaneous
  Country: US (occurrence: US)
  Receive Date: 20170613
  Receipt Date: 20180116
  Transmission Date: 20180508
  Serious: Yes (Congenital Anomaly, Other)
  Sender: FDA-Public Use
  Company Number: PHEH2017US017815

PATIENT
  Sex: Female

DRUGS (2)
  1. ZOFRAN ODT [Suspect]
     Active Substance: ONDANSETRON HYDROCHLORIDE
     Indication: FOETAL EXPOSURE DURING PREGNANCY
     Dosage: MOTHER^S DOSE: 8 MG, TID
     Route: 064
  2. ZOFRAN [Suspect]
     Active Substance: ONDANSETRON HYDROCHLORIDE
     Indication: FOETAL EXPOSURE DURING PREGNANCY
     Route: 064

REACTIONS (53)
  - Left-to-right cardiac shunt [Unknown]
  - Aorta hypoplasia [Unknown]
  - Heart disease congenital [Unknown]
  - Pulmonary arterial hypertension [Unknown]
  - Autism spectrum disorder [Unknown]
  - Enuresis [Unknown]
  - Tooth fracture [Unknown]
  - Patent ductus arteriosus [Unknown]
  - Failure to thrive [Unknown]
  - Cardiogenic shock [Unknown]
  - Right ventricular hypertrophy [Unknown]
  - Right ventricular dilatation [Unknown]
  - Pleural effusion [Unknown]
  - Febrile convulsion [Recovered/Resolved]
  - Congenital aortic stenosis [Unknown]
  - Aortic disorder [Unknown]
  - Neonatal respiratory failure [Unknown]
  - Coronary artery dilatation [Unknown]
  - Gastrooesophageal reflux disease [Unknown]
  - Wound [Unknown]
  - Long QT syndrome congenital [Unknown]
  - Endocarditis [Unknown]
  - Coronary artery stenosis [Unknown]
  - Lymphangioma [Unknown]
  - Seizure [Unknown]
  - Refraction disorder [Unknown]
  - Learning disorder [Unknown]
  - Aplasia cutis congenita [Unknown]
  - Ventricular septal defect [Unknown]
  - Ventricular hypertrophy [Unknown]
  - Pericarditis [Unknown]
  - Left ventricular dysfunction [Unknown]
  - Left ventricular hypertrophy [Unknown]
  - Mental impairment [Unknown]
  - Injury [Unknown]
  - Poor feeding infant [Unknown]
  - Strabismus [Unknown]
  - Attention deficit/hyperactivity disorder [Unknown]
  - Amblyopia congenital [Unknown]
  - Atrial septal defect [Unknown]
  - Eyelid ptosis congenital [Unknown]
  - Cyanosis neonatal [Unknown]
  - Pneumonia [Unknown]
  - Right ventricular hypertension [Unknown]
  - Congenital tricuspid valve stenosis [Unknown]
  - Congenital chylothorax [Unknown]
  - Pericardial effusion [Unknown]
  - Astigmatism [Unknown]
  - Coarctation of the aorta [Unknown]
  - Congenital mitral valve stenosis [Unknown]
  - Right ventricular dysfunction [Unknown]
  - Foetal exposure during pregnancy [Unknown]
  - Language disorder [Unknown]
